FAERS Safety Report 8614034-4 (Version None)
Quarter: 2012Q3

REPORT INFORMATION
  Report Type: 
  Country: None (occurrence: None)
  Receive Date: 20120823
  Receipt Date: 20120726
  Transmission Date: 20120928
  Serious: No
  Sender: FDA-Public Use
  Company Number: US-009507513-1208USA003986

PATIENT

DRUGS (2)
  1. MIRALAX [Suspect]
     Indication: BOWEL PREPARATION
     Dosage: 255 G, ONCE
     Route: 048
     Dates: start: 20120725
  2. MIRALAX [Suspect]
     Indication: COLONOSCOPY

REACTIONS (3)
  - VOMITING [None]
  - OFF LABEL USE [None]
  - OVERDOSE [None]
